FAERS Safety Report 10924413 (Version 1)
Quarter: 2015Q1

REPORT INFORMATION
  Report Type: Spontaneous
  Country: US (occurrence: None)
  Receive Date: 20150129
  Receipt Date: 20150129
  Transmission Date: 20150721
  Serious: Yes (Other)
  Sender: FDA-Public Use
  Company Number: 102995U

PATIENT
  Age: 28 Year
  Sex: Male
  Weight: 113.4 kg

DRUGS (3)
  1. LAMICTAL XR (LAMOTRIGINE) [Concomitant]
  2. KEPPRA XR [Suspect]
     Active Substance: LEVETIRACETAM
     Indication: SEIZURE
     Dosage: 4 TABLETS
  3. TOPRAMAX (TOPIRAMATE) [Concomitant]

REACTIONS (2)
  - Generalised tonic-clonic seizure [None]
  - Seizure [None]

NARRATIVE: CASE EVENT DATE: 201304
